FAERS Safety Report 4914993-7 (Version None)
Quarter: 2006Q1

REPORT INFORMATION
  Report Type: 
  Country: None (occurrence: None)
  Receive Date: 20060217
  Receipt Date: 20060208
  Transmission Date: 20060701
  Serious: Yes (Death)
  Sender: FDA-Public Use
  Company Number: US-AMGEN-US168013

PATIENT
  Sex: Female

DRUGS (4)
  1. NEUPOGEN [Suspect]
     Indication: CHEMOTHERAPY
     Dates: end: 20050501
  2. ARANESP [Suspect]
     Indication: ANAEMIA OF MALIGNANT DISEASE
     Dates: end: 20050501
  3. NAVELBINE [Concomitant]
     Route: 065
  4. TAXOTERE [Concomitant]
     Route: 065

REACTIONS (2)
  - BREAST CANCER FEMALE [None]
  - DISEASE PROGRESSION [None]
